FAERS Safety Report 7941188-5 (Version None)
Quarter: 2011Q4

REPORT INFORMATION
  Report Type: 
  Country: None (occurrence: None)
  Receive Date: 20111122
  Receipt Date: 20111107
  Transmission Date: 20120403
  Serious: Yes (Hospitalization)
  Sender: FDA-Public Use
  Company Number: US-006714

PATIENT
  Sex: Male
  Weight: 97.5234 kg

DRUGS (10)
  1. RANEXA [Concomitant]
  2. GLUCOSAMINE [Concomitant]
  3. RAMIPRIL [Concomitant]
  4. NITROGLYCERIN [Concomitant]
  5. SIMVASTATIN [Concomitant]
  6. ASPIRIN [Concomitant]
  7. DEGARELIX 240 MG [Suspect]
     Indication: PROSTATE CANCER
     Dosage: (SUBCUTANEOUS)
     Route: 058
     Dates: start: 20111031, end: 20111031
  8. ATENOLOL [Concomitant]
  9. NIACIN [Concomitant]
  10. GARLIC /01570501/ [Concomitant]

REACTIONS (3)
  - PNEUMONIA [None]
  - NEOPLASM SKIN [None]
  - INJECTION SITE CELLULITIS [None]
